FAERS Safety Report 4720764-7 (Version None)
Quarter: 2005Q3

REPORT INFORMATION
  Report Type: 
  Country: None (occurrence: None)
  Receive Date: 20050719
  Receipt Date: 20050705
  Transmission Date: 20060218
  Serious: Yes (Death, Other)
  Sender: FDA-Public Use
  Company Number: 2004231216US

PATIENT
  Age: 75 Year
  Sex: Female

DRUGS (15)
  1. CELEBREX [Suspect]
     Indication: ILL-DEFINED DISORDER
     Dosage: 200 MG (100 MG, 2 IN 1 D)
     Dates: start: 19990224, end: 20000301
  2. WARFARIN SODIUM [Concomitant]
  3. VERAPAMIL [Concomitant]
  4. TEMAZEPAM [Concomitant]
  5. KEFTAB (CEFALEXIN) [Concomitant]
  6. TRIMOX [Concomitant]
  7. BENAGEL (SEVELAMER HYDROCHLORIDE) [Concomitant]
  8. LASIX [Concomitant]
  9. K-DUR 10 [Concomitant]
  10. METOCLOPRAMIDE [Concomitant]
  11. MEGACE [Concomitant]
  12. LORAZEPAM [Concomitant]
  13. NORVASC [Concomitant]
  14. ISOSORBIDE [Concomitant]
  15. LANOXIN [Concomitant]

REACTIONS (2)
  - ACUTE MYOCARDIAL INFARCTION [None]
  - RENAL FAILURE [None]
